FAERS Safety Report 21849561 (Version 1)
Quarter: 2023Q1

REPORT INFORMATION
  Report Type: Spontaneous
  Country: GR (occurrence: GR)
  Receive Date: 20230111
  Receipt Date: 20230111
  Transmission Date: 20230417
  Serious: Yes (Hospitalization)
  Sender: FDA-Public Use
  Company Number: GR-BAYER-2023A001166

PATIENT
  Sex: Male

DRUGS (2)
  1. NUBEQA [Suspect]
     Active Substance: DAROLUTAMIDE
  2. SINTROM [Suspect]
     Active Substance: ACENOCOUMAROL

REACTIONS (2)
  - International normalised ratio increased [None]
  - Prothrombin level increased [None]

NARRATIVE: CASE EVENT DATE: 20230103
